FAERS Safety Report 7950306-4 (Version None)
Quarter: 2011Q4

REPORT INFORMATION
  Report Type: 
  Country: None (occurrence: None)
  Receive Date: 20111130
  Receipt Date: 20111116
  Transmission Date: 20120403
  Serious: Yes (Other)
  Sender: FDA-Public Use
  Company Number: US-BAYER-2011-038692

PATIENT
  Age: 20 Year
  Sex: Female
  Weight: 61.224 kg

DRUGS (3)
  1. NSAID'S [Concomitant]
     Dosage: UNK UNK, PRN
  2. YAZ [Suspect]
     Indication: CONTRACEPTION
     Dosage: UNK
     Dates: start: 20080101, end: 20110101
  3. VICODIN [Concomitant]

REACTIONS (4)
  - CHOLECYSTITIS CHRONIC [None]
  - INJURY [None]
  - PAIN [None]
  - GALLBLADDER DISORDER [None]
